FAERS Safety Report 4315974-7 (Version None)
Quarter: 2004Q1

REPORT INFORMATION
  Report Type: 
  Country: None (occurrence: None)
  Receive Date: 20040310
  Receipt Date: 20040225
  Transmission Date: 20041129
  Serious: Yes (Hospitalization)
  Sender: FDA-Public Use
  Company Number: 2003123820

PATIENT
  Age: 48 Year
  Sex: Male

DRUGS (3)
  1. ZITHROMAX [Suspect]
     Indication: PHARYNGITIS
     Dosage: 500 MG ORAL
     Route: 048
     Dates: start: 20031126, end: 20031128
  2. PL GRAN (CAFFEINE, SALKICYLAMIDE, PARACETAMOL, PROMETHAZINE METHYLENE [Suspect]
     Indication: NASOPHARYNGITIS
     Dosage: ORAL
     Route: 048
     Dates: start: 20031121, end: 20031124
  3. PRAVASTATIN SODIUM [Concomitant]

REACTIONS (11)
  - BACTERIAL INFECTION [None]
  - BASOPHIL COUNT INCREASED [None]
  - BLOOD ALKALINE PHOSPHATASE INCREASED [None]
  - EOSINOPHIL COUNT INCREASED [None]
  - LYMPHOCYTE COUNT DECREASED [None]
  - MONOCYTE COUNT DECREASED [None]
  - MYCOPLASMA INFECTION [None]
  - NEUTROPHIL COUNT DECREASED [None]
  - STEVENS-JOHNSON SYNDROME [None]
  - VIRAL INFECTION [None]
  - WHITE BLOOD CELL COUNT ABNORMAL [None]
